FAERS Safety Report 10922116 (Version 1)
Quarter: 2015Q1

REPORT INFORMATION
  Report Type: Spontaneous
  Country: ES (occurrence: None)
  Receive Date: 20150312
  Receipt Date: 20150312
  Transmission Date: 20150721
  Serious: Yes (Death, Other)
  Sender: FDA-Public Use
  Company Number: 2276520

PATIENT

DRUGS (5)
  1. RALTITREXED DISODIUM [Suspect]
     Active Substance: RALTITREXED
     Indication: RECTAL CANCER METASTATIC
     Dosage: 3 G/M2
     Dates: start: 200806, end: 200809
  2. IRINOTECAN HYDROCHLORIDE. [Suspect]
     Active Substance: IRINOTECAN HYDROCHLORIDE
     Indication: RECTAL CANCER METASTATIC
     Dates: start: 200809
  3. INVESTIGATIONAL DRUG [Suspect]
     Active Substance: INVESTIGATIONAL PRODUCT
     Indication: RECTAL CANCER METASTATIC
     Dates: start: 20090526
  4. CETUXIMAB [Suspect]
     Active Substance: CETUXIMAB
     Indication: RECTAL CANCER METASTATIC
     Dates: start: 200811
  5. OXALIPLATIN. [Suspect]
     Active Substance: OXALIPLATIN
     Indication: RECTAL CANCER METASTATIC
     Dates: start: 200806, end: 200809

REACTIONS (2)
  - Rectal cancer metastatic [None]
  - Malignant neoplasm progression [None]

NARRATIVE: CASE EVENT DATE: 200809
